FAERS Safety Report 4600705-3 (Version None)
Quarter: 2005Q1

REPORT INFORMATION
  Report Type: 
  Country: None (occurrence: None)
  Receive Date: 20050302
  Receipt Date: 20040806
  Transmission Date: 20050727
  Serious: Yes (Other)
  Sender: FDA-Public Use
  Company Number: 200510202BBE

PATIENT
  Sex: Male

DRUGS (3)
  1. KONYNE [Suspect]
     Indication: FACTOR IX DEFICIENCY
     Dosage: SEE IMAGE
     Dates: start: 19851115
  2. KONYNE [Suspect]
     Indication: FACTOR IX DEFICIENCY
     Dosage: SEE IMAGE
     Dates: start: 19870701
  3. KONYNE [Suspect]
     Indication: FACTOR IX DEFICIENCY
     Dosage: SEE IMAGE
     Dates: start: 19871101

REACTIONS (2)
  - HEPATITIS B VIRUS [None]
  - HEPATITIS C VIRUS [None]
